FAERS Safety Report 13458505 (Version 1)
Quarter: 2017Q2

REPORT INFORMATION
  Report Type: Other
  Country: US (occurrence: US)
  Receive Date: 20170419
  Receipt Date: 20170419
  Transmission Date: 20170830
  Serious: Yes (Other)
  Sender: FDA-Public Use
  Company Number: US-UNITED THERAPEUTICS-UNT-2017-005447

PATIENT
  Age: 41 Year
  Sex: Female
  Weight: 68.48 kg

DRUGS (2)
  1. ADCIRCA [Concomitant]
     Active Substance: TADALAFIL
     Indication: PRODUCT USED FOR UNKNOWN INDICATION
  2. TYVASO [Suspect]
     Active Substance: TREPROSTINIL
     Indication: PULMONARY HYPERTENSION
     Dosage: 18-54 MICROGRAMS, QID
     Dates: start: 20170315

REACTIONS (5)
  - Stomatitis [Unknown]
  - Blister [Unknown]
  - Headache [Unknown]
  - Flushing [Unknown]
  - Fatigue [Unknown]

NARRATIVE: CASE EVENT DATE: 201703
